FAERS Safety Report 9461370 (Version 1)
Quarter: 2013Q3

REPORT INFORMATION
  Report Type: Report from Study
  Country: KR (occurrence: KR)
  Receive Date: 20130816
  Receipt Date: 20130816
  Transmission Date: 20140515
  Serious: Yes (Hospitalization)
  Sender: FDA-Public Use
  Company Number: KR-GENZYME-THYM-1003989

PATIENT
  Age: 45 Year
  Sex: Male
  Weight: 59.8 kg

DRUGS (4)
  1. THYMOGLOBULINE [Suspect]
     Indication: APLASTIC ANAEMIA
     Dosage: UNK
     Route: 065
  2. SANDIMMUN NEORAL [Suspect]
     Indication: APLASTIC ANAEMIA
     Dosage: 175 MG, QD
     Route: 048
     Dates: start: 20130208
  3. SANDIMMUN NEORAL [Suspect]
     Dosage: 100 MG, QD
     Route: 048
     Dates: start: 20130729
  4. MAXIPIME [Concomitant]
     Indication: ANTI-INFECTIVE THERAPY
     Dosage: 4 G, UNK
     Route: 042

REACTIONS (1)
  - Dermal cyst [Not Recovered/Not Resolved]
